FAERS Safety Report 15881104 (Version 1)
Quarter: 2019Q1

REPORT INFORMATION
  Report Type: Spontaneous
  Country: FR (occurrence: FR)
  Receive Date: 20190128
  Receipt Date: 20190128
  Transmission Date: 20190417
  Serious: Yes (Life-Threatening)
  Sender: FDA-Public Use
  Company Number: FR-PFIZER INC-2019034970

PATIENT
  Age: 70 Year
  Sex: Female
  Weight: 66 kg

DRUGS (16)
  1. ALPRAZOLAM. [Suspect]
     Active Substance: ALPRAZOLAM
     Indication: DEPRESSION
     Dosage: UNK
     Route: 048
     Dates: end: 20181215
  2. LACTULOSE. [Suspect]
     Active Substance: LACTULOSE
     Indication: CONSTIPATION
     Dosage: UNK
     Route: 048
     Dates: end: 20181215
  3. EUPANTOL [Concomitant]
     Active Substance: PANTOPRAZOLE SODIUM
     Dosage: UNK
  4. LETROZOLE. [Suspect]
     Active Substance: LETROZOLE
     Indication: BREAST CANCER
     Dosage: 2.5 MG, 1X/DAY
     Route: 048
     Dates: start: 2015, end: 20181215
  5. TRANXENE [Concomitant]
     Active Substance: CLORAZEPATE DIPOTASSIUM
     Dosage: UNK
  6. JANUMET [Suspect]
     Active Substance: METFORMIN HYDROCHLORIDE\SITAGLIPTIN PHOSPHATE
     Indication: TYPE 2 DIABETES MELLITUS
     Dosage: [METFORMIN HYDROCHLORIDE 50 MG]/ [SITAGLIPTIN PHOSPHATE MONOHYDRATE 1000 MG], 2DF, 1X/DAY
     Route: 048
     Dates: start: 2009, end: 20181215
  7. BISOCE [Concomitant]
     Active Substance: BISOPROLOL
     Dosage: UNK
  8. IBUPROFEN. [Suspect]
     Active Substance: IBUPROFEN
     Indication: BACK PAIN
     Dosage: 1200 MG, 1X/DAY
     Route: 048
     Dates: start: 20181204, end: 20181209
  9. DICODIN [Suspect]
     Active Substance: DIHYDROCODEINE
     Indication: PAIN
     Dosage: 120 MG, 1X/DAY
     Route: 048
     Dates: start: 2018, end: 20181215
  10. PARACETAMOL [Suspect]
     Active Substance: ACETAMINOPHEN
     Indication: PAIN
     Dosage: 6 DF, 1X/DAY
     Route: 048
     Dates: start: 2018, end: 20181215
  11. LAROXYL [Suspect]
     Active Substance: AMITRIPTYLINE HYDROCHLORIDE
     Indication: DEPRESSION
     Dosage: 50 MG, 1X/DAY
     Route: 048
     Dates: end: 20181215
  12. TARDYFERON [Suspect]
     Active Substance: FERROUS SULFATE
     Dosage: UNK
     Route: 048
     Dates: end: 20181215
  13. THERALENE [Suspect]
     Active Substance: TRIMEPRAZINE
     Indication: DEPRESSION
     Dosage: UNK , 1X/DAY (5-10 DROPS PER DAY)
     Route: 048
     Dates: end: 20181215
  14. PRAVASTATIN SODIUM. [Concomitant]
     Active Substance: PRAVASTATIN SODIUM
     Dosage: UNK
  15. METFORMINE [METFORMIN] [Suspect]
     Active Substance: METFORMIN HYDROCHLORIDE
     Indication: TYPE 2 DIABETES MELLITUS
     Dosage: 1000 MG, 1X/DAY
     Route: 048
     Dates: start: 2007, end: 20181215
  16. FOLIC ACID. [Suspect]
     Active Substance: FOLIC ACID
     Dosage: 1 DF, 1X/DAY
     Route: 048
     Dates: start: 2015, end: 20181215

REACTIONS (5)
  - Vomiting [Recovered/Resolved]
  - Lactic acidosis [Recovered/Resolved]
  - Hyperkalaemia [Recovered/Resolved]
  - Acute kidney injury [Recovered/Resolved]
  - Nausea [Recovered/Resolved]

NARRATIVE: CASE EVENT DATE: 20181209
